FAERS Safety Report 14685930 (Version 1)
Quarter: 2018Q1

REPORT INFORMATION
  Report Type: Spontaneous
  Country: US (occurrence: US)
  Receive Date: 20180326
  Receipt Date: 20180326
  Transmission Date: 20180509
  Serious: Yes (Death, Life-Threatening, Hospitalization)
  Sender: FDA-Public Use
  Company Number: None

PATIENT
  Age: 86 Year
  Sex: Female
  Weight: 45 kg

DRUGS (10)
  1. WARFARIN [Suspect]
     Active Substance: WARFARIN
     Indication: CARDIAC VALVE DISEASE
     Route: 048
  2. SILDENAFIL CITRATE (SILDENAFIL) 20 MG TABLET PO TID [Concomitant]
  3. FUROSEMIDE (LASIX) 40 MG TABLET PO DAILY [Concomitant]
  4. WARFARIN [Suspect]
     Active Substance: WARFARIN
     Indication: ATRIAL FIBRILLATION
     Route: 048
  5. LOSARTAN POTASSIUM 50 MG TABLET--1/2 TABLET PO DAILY [Concomitant]
  6. CEFUROXIME AXETIL (CEFUROXIME)? 500 MG TABLET PO BID? (20 DISPENSED) [Concomitant]
     Dates: start: 20171219, end: 20171229
  7. HYDROCODONE/ACETAMINOPHEN? 5 MG/325 MG TABLET PO Q6H PRN PAIN   (30 DI [Concomitant]
  8. PRAVASTATIN SODIUM 40 MG TABLET PO BEDTIME [Concomitant]
  9. FERROUS SULFATE (FEOSOL)? 325 MG (65 MG IRON) TABLET PO DAILY [Concomitant]
  10. POTASSIUM CHLORIDE  20 MEQ/15 ML LIQUID--TAKE 10 MEQ PO DAILY [Concomitant]

REACTIONS (11)
  - Sepsis [None]
  - Melaena [None]
  - Small intestinal haemorrhage [None]
  - Urinary tract infection [None]
  - Anaemia [None]
  - Hypothermia [None]
  - Haemorrhage [None]
  - Hypotension [None]
  - Hypovolaemic shock [None]
  - International normalised ratio increased [None]
  - Cellulitis [None]

NARRATIVE: CASE EVENT DATE: 20180126
